FAERS Safety Report 5137287-6 (Version None)
Quarter: 2006Q4

REPORT INFORMATION
  Report Type: 
  Country: None (occurrence: None)
  Receive Date: 20061030
  Receipt Date: 20061020
  Transmission Date: 20070319
  Serious: Yes (Other)
  Sender: FDA-Public Use
  Company Number: US-JNJFOC-20061005189

PATIENT
  Sex: Female
  Weight: 76.2 kg

DRUGS (5)
  1. EXTRA STRENGTH TYLENOL [Suspect]
  2. EXTRA STRENGTH TYLENOL [Suspect]
     Indication: PAIN
  3. HYDROCHLOROTHIAZIDE [Concomitant]
     Indication: HYPERTENSION
  4. SYNTHROID [Concomitant]
     Indication: HYPOTHYROIDISM
  5. VIACTIV CALCIUM [Concomitant]
     Indication: MEDICAL DIET

REACTIONS (2)
  - AUTOIMMUNE DISORDER [None]
  - INTENTIONAL OVERDOSE [None]
